FAERS Safety Report 23247582 (Version 1)
Quarter: 2023Q4

REPORT INFORMATION
  Report Type: Spontaneous
  Country: US (occurrence: None)
  Receive Date: 20231130
  Receipt Date: 20231130
  Transmission Date: 20240110
  Serious: Yes (Other)
  Sender: FDA-Public Use
  Company Number: None

PATIENT
  Age: 30 Year
  Sex: Female
  Weight: 51.71 kg

DRUGS (1)
  1. PARAGARD T 380A [Suspect]
     Active Substance: COPPER
     Dosage: OTHER FREQUENCY : EVERY10YEARS;?
     Route: 015

REACTIONS (1)
  - Pregnancy with contraceptive device [None]

NARRATIVE: CASE EVENT DATE: 20231129
